FAERS Safety Report 7338074-0 (Version None)
Quarter: 2011Q1

REPORT INFORMATION
  Report Type: 
  Country: None (occurrence: None)
  Receive Date: 20110308
  Receipt Date: 20110222
  Transmission Date: 20110831
  Serious: Yes (Hospitalization, Other)
  Sender: FDA-Public Use
  Company Number: PHBS2007US21749

PATIENT
  Sex: Female

DRUGS (2)
  1. DESFERAL [Suspect]
     Indication: IRON OVERLOAD
     Dosage: UNK
     Dates: start: 20071121
  2. EXJADE [Suspect]
     Indication: IRON OVERLOAD
     Dosage: 500 MG, UNK
     Route: 048

REACTIONS (47)
  - TENDERNESS [None]
  - PANCREATITIS [None]
  - AORTIC VALVE DISEASE [None]
  - HEADACHE [None]
  - URINARY TRACT INFECTION [None]
  - MICTURITION URGENCY [None]
  - ENDOCARDITIS [None]
  - DEVICE RELATED INFECTION [None]
  - CONVULSION [None]
  - THROMBOCYTOPENIA [None]
  - CONSTIPATION [None]
  - FORMICATION [None]
  - CEREBROVASCULAR ACCIDENT [None]
  - FATIGUE [None]
  - THERMAL BURN [None]
  - SKIN HYPERTROPHY [None]
  - NAUSEA [None]
  - MUSCLE SPASMS [None]
  - URINE ODOUR ABNORMAL [None]
  - ARTHRALGIA [None]
  - PAIN IN EXTREMITY [None]
  - CARDIAC MURMUR [None]
  - MUSCULOSKELETAL DISCOMFORT [None]
  - PALLOR [None]
  - SKIN SWELLING [None]
  - ARTHROPOD BITE [None]
  - RENAL FAILURE [None]
  - PERIARTHRITIS [None]
  - ARTHRITIS INFECTIVE [None]
  - PYREXIA [None]
  - HYPERTENSION [None]
  - RHINITIS ALLERGIC [None]
  - VISUAL IMPAIRMENT [None]
  - URINARY INCONTINENCE [None]
  - OEDEMA PERIPHERAL [None]
  - SICKLE CELL ANAEMIA WITH CRISIS [None]
  - COUGH [None]
  - RASH [None]
  - PRURITUS [None]
  - SUBARACHNOID HAEMORRHAGE [None]
  - ABDOMINAL PAIN UPPER [None]
  - VOMITING [None]
  - DEPRESSION [None]
  - PERSONALITY DISORDER [None]
  - CELLULITIS [None]
  - ERYTHEMA [None]
  - BLISTER [None]
